FAERS Safety Report 5596020-4 (Version None)
Quarter: 2008Q1

REPORT INFORMATION
  Report Type: 
  Country: None (occurrence: None)
  Receive Date: 20080118
  Receipt Date: 20080109
  Transmission Date: 20080703
  Serious: Yes (Other)
  Sender: FDA-Public Use
  Company Number: MX-ROCHE-541390

PATIENT
  Age: 34 Year
  Sex: Female

DRUGS (1)
  1. ROACCUTAN [Suspect]
     Indication: ACNE
     Route: 048
     Dates: start: 20070805, end: 20070905

REACTIONS (2)
  - NO ADVERSE EVENT [None]
  - PREGNANCY [None]
